FAERS Safety Report 6032443-7 (Version None)
Quarter: 2009Q1

REPORT INFORMATION
  Report Type: 
  Country: None (occurrence: None)
  Receive Date: 20090109
  Receipt Date: 20081231
  Transmission Date: 20090719
  Serious: Yes (Hospitalization)
  Sender: FDA-Public Use
  Company Number: US-BIOGENIDEC-2008BI028406

PATIENT
  Age: 45 Year
  Sex: Female
  Weight: 96 kg

DRUGS (2)
  1. AVONEX [Suspect]
     Indication: MULTIPLE SCLEROSIS
     Route: 030
     Dates: start: 20070601
  2. APPETITE SUPPRESANT [Concomitant]
     Indication: OVERWEIGHT

REACTIONS (15)
  - BALANCE DISORDER [None]
  - CHEST DISCOMFORT [None]
  - ELECTROCARDIOGRAM ABNORMAL [None]
  - HEADACHE [None]
  - HEARING IMPAIRED [None]
  - HYPOAESTHESIA [None]
  - INFLUENZA LIKE ILLNESS [None]
  - INJECTION SITE PAIN [None]
  - NECK PAIN [None]
  - PAIN [None]
  - PAIN IN EXTREMITY [None]
  - PARAESTHESIA [None]
  - PERONEAL NERVE PALSY [None]
  - POOR QUALITY SLEEP [None]
  - VISION BLURRED [None]
